FAERS Safety Report 25989653 (Version 1)
Quarter: 2025Q4

REPORT INFORMATION
  Report Type: Report from Study
  Country: UM (occurrence: UM)
  Receive Date: 20251103
  Receipt Date: 20251103
  Transmission Date: 20260118
  Serious: Yes (Hospitalization)
  Sender: JOHNSON AND JOHNSON
  Company Number: UM-JNJFOC-20251032601

PATIENT
  Sex: Female

DRUGS (1)
  1. TREMFYA [Suspect]
     Active Substance: GUSELKUMAB
     Indication: Psoriasis
     Route: 058
     Dates: start: 202310

REACTIONS (9)
  - Renal disorder [Unknown]
  - Liver disorder [Unknown]
  - Gastric dilatation [Unknown]
  - Swelling [Unknown]
  - Gait disturbance [Unknown]
  - Fall [Unknown]
  - Nausea [Unknown]
  - Vomiting [Unknown]
  - Inadequate diet [Unknown]
